FAERS Safety Report 7357285-1 (Version None)
Quarter: 2011Q1

REPORT INFORMATION
  Report Type: 
  Country: None (occurrence: None)
  Receive Date: 20110317
  Receipt Date: 20110307
  Transmission Date: 20110831
  Serious: No
  Sender: FDA-Public Use
  Company Number: US-PFIZER INC-US-WYE-H13270510

PATIENT
  Sex: Male

DRUGS (5)
  1. PRISTIQ [Suspect]
     Dosage: RESTARTED AT AN UNSPECIFIED DOSE
     Route: 065
  2. LORAZEPAM [Concomitant]
  3. PRISTIQ [Suspect]
     Dosage: 100 MG, FREQUENCY NOT SPECIFIED
     Route: 065
  4. PRISTIQ [Suspect]
     Dosage: TAPERED DOWN TO 25 MG FREQUENCY UNSPECIFIED, AND THEN STOPPED
     Route: 065
  5. ZOLOFT [Suspect]

REACTIONS (2)
  - DRUG INEFFECTIVE [None]
  - SEXUAL DYSFUNCTION [None]
